FAERS Safety Report 9660716 (Version 1)
Quarter: 2013Q4

REPORT INFORMATION
  Report Type: Spontaneous
  Country: DK (occurrence: DK)
  Receive Date: 20131031
  Receipt Date: 20131031
  Transmission Date: 20140711
  Serious: Yes (Hospitalization)
  Sender: FDA-Public Use
  Company Number: DK-PFIZER INC-2013307972

PATIENT
  Age: 7 Year
  Sex: Male
  Weight: 74 kg

DRUGS (3)
  1. GENOTROPIN [Suspect]
     Indication: GROWTH HORMONE DEFICIENCY
     Dosage: 3MG/DAY
     Route: 058
     Dates: start: 19990207
  2. SPIROCORT [Concomitant]
     Indication: ASTHMA
  3. BRICANYL [Concomitant]
     Indication: ASTHMA

REACTIONS (2)
  - Neutropenia [Unknown]
  - Leukopenia [Recovered/Resolved]
